FAERS Safety Report 6183955-7 (Version None)
Quarter: 2009Q2

REPORT INFORMATION
  Report Type: 
  Country: None (occurrence: None)
  Receive Date: 20090508
  Receipt Date: 20090505
  Transmission Date: 20091009
  Serious: No
  Sender: FDA-Public Use
  Company Number: US-B.I. PHARMACEUTICALS,INC./RIDGEFIELD-2007-BP-26917BP

PATIENT
  Age: 56 Year
  Sex: Female

DRUGS (4)
  1. ZANTAC 75 [Suspect]
     Indication: DYSPEPSIA
     Dosage: 150MG
     Route: 048
     Dates: start: 20060101
  2. ZANTAC 75 [Suspect]
  3. METOPROLOL TARTRATE [Concomitant]
  4. BETA BLOCKERS [Concomitant]
     Indication: HYPERTENSION

REACTIONS (2)
  - CONDITION AGGRAVATED [None]
  - DRUG INEFFECTIVE [None]
